FAERS Safety Report 8924916 (Version 2)
Quarter: 2015Q1

REPORT INFORMATION
  Report Type: Spontaneous
  Country: AU (occurrence: AU)
  Receive Date: 20121126
  Receipt Date: 20150113
  Transmission Date: 20150721
  Serious: Yes (Death, Hospitalization)
  Sender: FDA-Public Use
  Company Number: AU-RANBAXY-2012R1-62438

PATIENT
  Age: 69 Year
  Sex: Male

DRUGS (1)
  1. MINOCYCLINE [Suspect]
     Active Substance: MINOCYCLINE\MINOCYCLINE HYDROCHLORIDE
     Indication: PRODUCT USED FOR UNKNOWN INDICATION
     Dosage: 100 MG, BID
     Route: 065

REACTIONS (10)
  - Chondropathy [Unknown]
  - Clubbing [Unknown]
  - Bone hyperpigmentation [Unknown]
  - Nasal disorder [Unknown]
  - Subcutaneous emphysema [Unknown]
  - Respiratory failure [Fatal]
  - Bronchiectasis [Unknown]
  - Thyroid disorder [Unknown]
  - Pneumonia [Unknown]
  - Bullous lung disease [Unknown]
